FAERS Safety Report 12659180 (Version 3)
Quarter: 2016Q4

REPORT INFORMATION
  Report Type: Report from Study
  Country: KR (occurrence: KR)
  Receive Date: 20160817
  Receipt Date: 20161221
  Transmission Date: 20170207
  Serious: Yes (Hospitalization, Other)
  Sender: FDA-Public Use
  Company Number: KR-CELLTRION HEALTHCARE HUNGARY KFT-2016KR007741

PATIENT

DRUGS (6)
  1. REMSIMA [Suspect]
     Active Substance: INFLIXIMAB
     Dosage: 300 MG, EVERY 2 MONTHS
     Route: 042
     Dates: start: 20160727, end: 20160727
  2. REMSIMA [Suspect]
     Active Substance: INFLIXIMAB
     Indication: COLITIS ULCERATIVE
     Dosage: 300 MG, EVERY 2 MONTHS
     Route: 042
     Dates: start: 20160407, end: 20160407
  3. COZAAR [Concomitant]
     Active Substance: LOSARTAN POTASSIUM
     Indication: HYPERTENSION
     Dosage: 100 MG, DAILY
     Route: 048
  4. PENTASA [Concomitant]
     Active Substance: MESALAMINE
     Indication: COLITIS ULCERATIVE
     Dosage: 2 G, DAILY
     Route: 048
     Dates: start: 20150826
  5. CEFTRIAXONE. [Concomitant]
     Active Substance: CEFTRIAXONE
     Dosage: 4 G, UNK
     Route: 042
     Dates: start: 20160823, end: 20160829
  6. MOTIN                              /00706001/ [Concomitant]
     Dosage: 40 MG, UNK
     Route: 042
     Dates: start: 20160822, end: 20160828

REACTIONS (1)
  - Gastric cancer [Recovered/Resolved]

NARRATIVE: CASE EVENT DATE: 20160805
